FAERS Safety Report 9675619 (Version 2)
Quarter: 2014Q4

REPORT INFORMATION
  Report Type: Spontaneous
  Country: US (occurrence: None)
  Receive Date: 20131105
  Receipt Date: 20141126
  Transmission Date: 20150529
  Serious: Yes (Other)
  Sender: FDA-Public Use
  Company Number: JPI-P-034235

PATIENT
  Age: 31 Year
  Weight: 59 kg

DRUGS (14)
  1. KEPPRA [Suspect]
     Active Substance: LEVETIRACETAM
     Indication: PRODUCT USED FOR UNKNOWN INDICATION
  2. ALBUTEROL (SALBUTAMOL SULFATE) [Concomitant]
  3. LORATIDINE [Concomitant]
     Active Substance: LORATADINE
  4. LAMOTRIGINE (LAMOTRIGINE) [Concomitant]
     Active Substance: LAMOTRIGINE
  5. FAMOTIDINE (FAMOTIDINE) [Concomitant]
     Active Substance: FAMOTIDINE
  6. VALACYCLOVIR HCL PHARMA PAC (VALACICLOVIR HYDROCHLORIDE) [Concomitant]
  7. CITALOPRAM [Concomitant]
     Active Substance: CITALOPRAM HYDROBROMIDE
  8. XYREM [Suspect]
     Active Substance: SODIUM OXYBATE
     Indication: CATAPLEXY
     Route: 048
     Dates: start: 201208, end: 2012
  9. HYDROCORTISONE (HYDROCORTISONE) [Concomitant]
  10. IBUPROFEN (IBUPROFEN) [Concomitant]
     Active Substance: IBUPROFEN
  11. TRIAMCINOLONE (TRIAMCINOLONE ACETONIDE) [Concomitant]
  12. ZOVIRAX (ACICLOVIR SODIUM) [Concomitant]
  13. XYREM [Suspect]
     Active Substance: SODIUM OXYBATE
     Indication: NARCOLEPSY
     Route: 048
     Dates: start: 201208, end: 2012
  14. NAPROXEN SODIUM (NAPROXEN SODIUM) [Concomitant]

REACTIONS (3)
  - Somnolence [None]
  - Epilepsy [None]
  - Performance status decreased [None]
